FAERS Safety Report 11274610 (Version 1)
Quarter: 2015Q3

REPORT INFORMATION
  Report Type: Spontaneous
  Country: BR (occurrence: BR)
  Receive Date: 20150715
  Receipt Date: 20150715
  Transmission Date: 20151125
  Serious: Yes (Hospitalization)
  Sender: FDA-Public Use
  Company Number: BR-ALLERGAN-1513320US

PATIENT
  Age: 83 Year
  Sex: Male

DRUGS (1)
  1. ALPHAGAN P [Suspect]
     Active Substance: BRIMONIDINE TARTRATE
     Indication: GLAUCOMA
     Dosage: 2 GTT, BID
     Route: 047
     Dates: start: 20150525

REACTIONS (3)
  - Intestinal haemorrhage [Unknown]
  - Coagulopathy [Unknown]
  - Epistaxis [Unknown]

NARRATIVE: CASE EVENT DATE: 20150615
